FAERS Safety Report 13297194 (Version 1)
Quarter: 2017Q1

REPORT INFORMATION
  Report Type: Report from Study
  Country: US (occurrence: US)
  Receive Date: 20170306
  Receipt Date: 20170306
  Transmission Date: 20170428
  Serious: Yes (Other)
  Sender: FDA-Public Use
  Company Number: US-ROCHE-1901886

PATIENT
  Age: 42 Year
  Sex: Male

DRUGS (4)
  1. DEOXYRIBONUCLEASE [Concomitant]
     Indication: EMPYEMA
  2. ALTEPLASE [Suspect]
     Active Substance: ALTEPLASE
     Indication: INFECTIOUS PLEURAL EFFUSION
     Route: 034
  3. ALTEPLASE [Suspect]
     Active Substance: ALTEPLASE
     Indication: EMPYEMA
  4. DEOXYRIBONUCLEASE [Concomitant]
     Indication: INFECTIOUS PLEURAL EFFUSION
     Dosage: 6 DOSES
     Route: 034

REACTIONS (2)
  - Neoplasm malignant [Unknown]
  - Treatment failure [Unknown]
